FAERS Safety Report 4296902-X (Version None)
Quarter: 2004Q1

REPORT INFORMATION
  Report Type: 
  Country: None (occurrence: None)
  Receive Date: 20040217
  Receipt Date: 20031020
  Transmission Date: 20041129
  Serious: Yes (Other)
  Sender: FDA-Public Use
  Company Number: FR-BRISTOL-MYERS SQUIBB COMPANY-12414959

PATIENT
  Age: 74 Year
  Sex: Male
  Weight: 70 kg

DRUGS (5)
  1. QUESTRAN [Suspect]
     Indication: HYPERCHOLESTEROLAEMIA
     Dosage: DOSAGE FORM = SACHETS
     Route: 048
     Dates: start: 20030819
  2. PREVISCAN [Interacting]
     Indication: QUADRUPLE VESSEL BYPASS GRAFT
     Dosage: DOSE INCREASED TO 35MG/DAY ON 16-OCT-2003
     Route: 048
     Dates: start: 19910101
  3. TAHOR [Concomitant]
     Indication: HYPERCHOLESTEROLAEMIA
     Dosage: INITIATED ON 40MG/DAY HAD TO BE DECREASED BECAUSE OF INTOLERANCE.
     Dates: start: 19980101
  4. TENORMIN [Concomitant]
     Dates: start: 19980101
  5. ASPIRIN [Concomitant]
     Dates: start: 19980101

REACTIONS (2)
  - DRUG INTERACTION [None]
  - PROTHROMBIN TIME RATIO INCREASED [None]
